FAERS Safety Report 4881363-X (Version None)
Quarter: 2006Q1

REPORT INFORMATION
  Report Type: 
  Country: None (occurrence: None)
  Receive Date: 20060111
  Receipt Date: 20060111
  Transmission Date: 20060701
  Serious: Yes (Life-Threatening)
  Sender: FDA-Public Use
  Company Number: None

PATIENT
  Age: 49 Year
  Sex: Male

DRUGS (2)
  1. FENTANYL [Suspect]
     Indication: OESOPHAGOGASTRODUODENOSCOPY
     Dosage: 200 MCG ONE TIME IV
     Route: 042
     Dates: start: 20051108
  2. MIDAZOLAM [Suspect]
     Indication: OESOPHAGOGASTRODUODENOSCOPY
     Dosage: 5 MG ONE TIME IV
     Route: 042
     Dates: start: 20051108

REACTIONS (3)
  - BLOOD PRESSURE SYSTOLIC DECREASED [None]
  - CARDIO-RESPIRATORY ARREST [None]
  - RESPIRATION ABNORMAL [None]
